FAERS Safety Report 24781559 (Version 1)
Quarter: 2024Q4

REPORT INFORMATION
  Report Type: Spontaneous
  Country: US (occurrence: US)
  Receive Date: 20241227
  Receipt Date: 20241227
  Transmission Date: 20250114
  Serious: Yes (Hospitalization)
  Sender: GERON CORP
  Company Number: US-GERON-INTAKE-US-2023-2024

PATIENT
  Sex: Male

DRUGS (1)
  1. RYTELO [Suspect]
     Active Substance: IMETELSTAT SODIUM
     Indication: Product used for unknown indication
     Dosage: UNK MILLIGRAM/KILOGRAM, UNK
     Route: 042

REACTIONS (1)
  - Abdominal cavity drainage [Recovered/Resolved]
